FAERS Safety Report 5691636-9 (Version None)
Quarter: 2008Q2

REPORT INFORMATION
  Report Type: 
  Country: None (occurrence: None)
  Receive Date: 20080402
  Receipt Date: 20080325
  Transmission Date: 20081010
  Serious: Yes (Life-Threatening, Hospitalization)
  Sender: FDA-Public Use
  Company Number: GB-AMGEN-US271532

PATIENT
  Sex: Female
  Weight: 88 kg

DRUGS (11)
  1. ENBREL [Suspect]
     Indication: PSORIATIC ARTHROPATHY
     Route: 058
     Dates: start: 20040315, end: 20070915
  2. CALCIUM CARBONATE [Concomitant]
     Dosage: UNKNOWN
     Route: 065
  3. ACETAMINOPHEN W/ PROPOXYPHENE HCL [Concomitant]
     Dosage: UNKNOWN
     Route: 065
  4. ACETAMINOPHEN [Concomitant]
     Dosage: UNKNOWN
     Route: 065
  5. ETORICOXIB [Concomitant]
     Dosage: UNKNOWN
     Route: 065
  6. FOLIC ACID [Concomitant]
     Dosage: UNKNOWN
     Route: 065
  7. LANSOPRAZOLE [Concomitant]
     Dosage: UNKNOWN
     Route: 065
  8. METOCLOPRAMIDE [Concomitant]
     Dosage: UNKNOWN
     Route: 065
  9. METHOTREXATE [Concomitant]
     Dosage: UNKNOWN
     Route: 065
     Dates: start: 20030101, end: 20070901
  10. DETRUSITOL [Concomitant]
     Dosage: UNKNOWN
     Route: 065
  11. UNSPECIFIED HORMONE REPLACEMENT THERAPY AGENT [Concomitant]
     Route: 065

REACTIONS (1)
  - ALVEOLITIS FIBROSING [None]
